FAERS Safety Report 7534495-1 (Version None)
Quarter: 2011Q2

REPORT INFORMATION
  Report Type: 
  Country: None (occurrence: None)
  Receive Date: 20110609
  Receipt Date: 20090430
  Transmission Date: 20111010
  Serious: Yes (Death, Hospitalization)
  Sender: FDA-Public Use
  Company Number: PHHY2009DE00840

PATIENT
  Sex: Male
  Weight: 70 kg

DRUGS (3)
  1. EXJADE [Suspect]
     Indication: MYELODYSPLASTIC SYNDROME
     Dosage: 20 MG/KG
     Route: 048
     Dates: start: 20070201, end: 20070228
  2. EXJADE [Suspect]
     Indication: HAEMOSIDEROSIS
     Dosage: 15 MG/KG, QD
     Route: 048
     Dates: start: 20061026, end: 20070131
  3. EXJADE [Suspect]
     Dosage: 30 MG/KG
     Route: 048
     Dates: start: 20070301, end: 20070601

REACTIONS (1)
  - ACUTE LEUKAEMIA [None]
